FAERS Safety Report 11647060 (Version 1)
Quarter: 2015Q4

REPORT INFORMATION
  Report Type: Not Available
  Country: FR (occurrence: FR)
  Receive Date: 20151021
  Receipt Date: 20151021
  Transmission Date: 20160304
  Serious: Yes (Hospitalization)
  Sender: FDA-Public Use
  Company Number: FR-BEH-2015054655

PATIENT
  Age: 70 Year
  Sex: Female

DRUGS (12)
  1. PRIVIGEN [Suspect]
     Active Substance: HUMAN IMMUNOGLOBULIN G
     Route: 042
     Dates: start: 20150814, end: 20150814
  2. CRESTOR [Concomitant]
     Active Substance: ROSUVASTATIN CALCIUM
  3. FOLIC ACID. [Concomitant]
     Active Substance: FOLIC ACID
  4. PRIVIGEN [Suspect]
     Active Substance: HUMAN IMMUNOGLOBULIN G
     Indication: NECROTISING MYOSITIS
     Route: 042
     Dates: start: 20150813, end: 20150813
  5. URSOLVAN [Concomitant]
     Active Substance: URSODIOL
  6. PROPANOLOL [Concomitant]
     Active Substance: PROPRANOLOL HYDROCHLORIDE
  7. FOSAVANCE [Concomitant]
     Active Substance: ALENDRONATE SODIUM\CHOLECALCIFEROL
  8. INEXIUM [Concomitant]
     Active Substance: ESOMEPRAZOLE
  9. PREDNISONE. [Concomitant]
     Active Substance: PREDNISONE
  10. PARACETAMOL [Concomitant]
     Active Substance: ACETAMINOPHEN
  11. METOJECT [Concomitant]
     Active Substance: METHOTREXATE SODIUM
  12. CALCIDOSE [Concomitant]
     Active Substance: CALCIUM CARBONATE

REACTIONS (4)
  - Haemolytic anaemia [Recovered/Resolved]
  - Thrombocytopenia [Not Recovered/Not Resolved]
  - Ascites [Unknown]
  - Portal hypertension [Unknown]

NARRATIVE: CASE EVENT DATE: 20150818
